FAERS Safety Report 5752561-8 (Version None)
Quarter: 2008Q2

REPORT INFORMATION
  Report Type: 
  Country: None (occurrence: None)
  Receive Date: 20080529
  Receipt Date: 20080523
  Transmission Date: 20081010
  Serious: Yes (Other)
  Sender: FDA-Public Use
  Company Number: PHHY2008CH08826

PATIENT

DRUGS (6)
  1. ZOMETA [Suspect]
     Indication: METASTASES TO BONE
     Dosage: 4 MG, QMO
     Dates: start: 20060101
  2. PREDNISONE TAB [Concomitant]
     Dosage: 10 MG PER DAY
  3. FLECTOR [Concomitant]
     Dosage: 5 MG PER DAY
  4. SEROPRAM [Concomitant]
     Dosage: 10 MG PER DAY
  5. GLUCOPHAGE [Concomitant]
     Dosage: 1000 MG PER DAY
  6. PREGABALIN [Concomitant]
     Dosage: 50 MG PER DAY

REACTIONS (2)
  - BONE LESION [None]
  - OSTEONECROSIS [None]
